FAERS Safety Report 25017583 (Version 2)
Quarter: 2025Q2

REPORT INFORMATION
  Report Type: Spontaneous
  Country: US (occurrence: US)
  Receive Date: 20250227
  Receipt Date: 20250503
  Transmission Date: 20250717
  Serious: Yes (Other)
  Sender: AUROBINDO
  Company Number: US-AUROBINDO-AUR-APL-2025-010086

PATIENT
  Age: 74 Year
  Sex: Female

DRUGS (1)
  1. METHENAMINE HIPPURATE [Suspect]
     Active Substance: METHENAMINE HIPPURATE
     Indication: Product used for unknown indication
     Route: 065

REACTIONS (6)
  - Foreign body in throat [Unknown]
  - Dysuria [Unknown]
  - Product use complaint [Unknown]
  - Product size issue [Unknown]
  - Product solubility abnormal [Unknown]
  - Product taste abnormal [Unknown]
